FAERS Safety Report 8811638 (Version 1)
Quarter: 2012Q4

REPORT INFORMATION
  Report Type: 
  Country: US (occurrence: US)
  Receive Date: 20120927
  Receipt Date: 20120927
  Transmission Date: 20130627
  Serious: Yes (Other)
  Sender: FDA-Public Use
  Company Number: US-FRI-1000038702

PATIENT
  Sex: Female

DRUGS (3)
  1. SAVELLA [Suspect]
     Dosage: 12.5MG
  2. SAVELLA [Suspect]
     Dosage: 25MG
  3. SAVELLA [Suspect]
     Dosage: 12.5MG

REACTIONS (2)
  - Neoplasm [Unknown]
  - Nausea [Recovered/Resolved]
